FAERS Safety Report 9220178 (Version 4)
Quarter: 2013Q4

REPORT INFORMATION
  Report Type: Report from Study
  Country: JP (occurrence: JP)
  Receive Date: 20130409
  Receipt Date: 20131220
  Transmission Date: 20140711
  Serious: Yes (Hospitalization)
  Sender: FDA-Public Use
  Company Number: JP-PFIZER INC-2013106115

PATIENT
  Age: 75 Year
  Sex: Male
  Weight: 49 kg

DRUGS (6)
  1. XALKORI [Suspect]
     Indication: NON-SMALL CELL LUNG CANCER
     Dosage: 250 MG, 2X/DAY
     Route: 048
     Dates: start: 20120912, end: 20121115
  2. XALKORI [Suspect]
     Dosage: 200 MG, 2X/DAY
     Route: 048
     Dates: start: 20121116, end: 20121214
  3. XALKORI [Suspect]
     Dosage: 250 MG, 1X/DAY
     Route: 048
     Dates: start: 20121215, end: 20130308
  4. AMOBAN [Concomitant]
     Dosage: 7.5 MG, 1X/DAY
     Route: 048
  5. MUCOSOLVAN [Concomitant]
     Dosage: 45 MG, 1X/DAY
     Route: 048
     Dates: start: 20130125
  6. PREDNISOLONE [Concomitant]
     Dosage: 30 MG, 1X/DAY
     Route: 048
     Dates: start: 20130302

REACTIONS (1)
  - Organising pneumonia [Recovered/Resolved]
